FAERS Safety Report 5742552-5 (Version None)
Quarter: 2008Q2

REPORT INFORMATION
  Report Type: 
  Country: None (occurrence: None)
  Receive Date: 20080515
  Receipt Date: 20080506
  Transmission Date: 20081010
  Serious: Yes (Other)
  Sender: FDA-Public Use
  Company Number: 2008AP001138

PATIENT
  Sex: 0

DRUGS (1)
  1. SERTRALINE HYDROCHLORIDE [Suspect]
     Dosage: 50 MG;  TRP;  QD;   100 MG; QD; TRPL
     Route: 064

REACTIONS (6)
  - CONVULSION NEONATAL [None]
  - EYE ROLLING [None]
  - MATERNAL DRUGS AFFECTING FOETUS [None]
  - MUSCLE TWITCHING [None]
  - NEONATAL DISORDER [None]
  - SMALL FOR DATES BABY [None]
